FAERS Safety Report 9664560 (Version 1)
Quarter: 2013Q4

REPORT INFORMATION
  Report Type: Spontaneous
  Country: FR (occurrence: FR)
  Receive Date: 20131101
  Receipt Date: 20131101
  Transmission Date: 20140711
  Serious: Yes (Life-Threatening, Hospitalization, Other)
  Sender: FDA-Public Use
  Company Number: FR-ABBVIE-13P-056-1162691-00

PATIENT
  Age: 54 Year
  Sex: Male

DRUGS (5)
  1. HUMIRA [Suspect]
     Indication: COLITIS ULCERATIVE
     Dosage: 160MG THEN 80MG AT DAY14
     Dates: start: 201303, end: 201306
  2. HUMIRA [Suspect]
     Dates: start: 201210, end: 201301
  3. AZATHIOPRINE [Suspect]
     Indication: COLITIS ULCERATIVE
     Dates: start: 201204, end: 201306
  4. PREDNISOLONE [Suspect]
     Indication: COLITIS ULCERATIVE
     Route: 048
     Dates: start: 201204, end: 201306
  5. QUADRASA (SODIUM PARA-AMINOSALICYLATE) [Suspect]
     Indication: PRODUCT USED FOR UNKNOWN INDICATION

REACTIONS (27)
  - General physical health deterioration [Recovering/Resolving]
  - Dyspnoea exertional [Unknown]
  - Cough [Unknown]
  - Weight decreased [Unknown]
  - Decreased appetite [Unknown]
  - Asthenia [Unknown]
  - Renal failure acute [Unknown]
  - Hepatic failure [Unknown]
  - Night sweats [Unknown]
  - Pancytopenia [Unknown]
  - Diarrhoea [Unknown]
  - Proctalgia [Unknown]
  - Nausea [Unknown]
  - Disseminated tuberculosis [Recovering/Resolving]
  - Serum ferritin increased [Unknown]
  - Cholestasis [Unknown]
  - Disorientation [Unknown]
  - Disturbance in attention [Unknown]
  - Respiratory failure [Unknown]
  - Hypoxia [Unknown]
  - Hypercalcaemia [Unknown]
  - Lymphadenopathy [Unknown]
  - Histiocytosis haematophagic [Unknown]
  - Anuria [Unknown]
  - Pulmonary necrosis [Unknown]
  - Pyrexia [Unknown]
  - Tachypnoea [Unknown]
